FAERS Safety Report 9057501 (Version 1)
Quarter: 2013Q1

REPORT INFORMATION
  Report Type: Spontaneous
  Country: US (occurrence: None)
  Receive Date: 20130116
  Receipt Date: 20130116
  Transmission Date: 20140127
  Serious: Yes (Other)
  Sender: FDA-Public Use
  Company Number: None

PATIENT
  Age: 46 Year
  Sex: Female
  Weight: 64.86 kg

DRUGS (1)
  1. NYSTATIN AND TRIAMCINOLONE ACETONIDE [Suspect]
     Indication: LIP INJURY
     Dosage: FOUR X DAILY    7-10 DAYS
     Dates: start: 20121126, end: 20121201

REACTIONS (9)
  - Nausea [None]
  - Vomiting [None]
  - Diarrhoea [None]
  - Headache [None]
  - Dizziness [None]
  - Activities of daily living impaired [None]
  - Malaise [None]
  - Wrong drug administered [None]
  - Incorrect route of drug administration [None]
